FAERS Safety Report 4911670-3 (Version None)
Quarter: 2006Q1

REPORT INFORMATION
  Report Type: 
  Country: None (occurrence: None)
  Receive Date: 20060213
  Receipt Date: 20060130
  Transmission Date: 20060701
  Serious: Yes (Other)
  Sender: FDA-Public Use
  Company Number: 2006015564

PATIENT
  Age: 69 Year
  Sex: Male
  Weight: 88.4514 kg

DRUGS (1)
  1. LIPITOR [Suspect]
     Indication: BLOOD CHOLESTEROL
     Dates: end: 20060129

REACTIONS (3)
  - DEAFNESS [None]
  - MACULAR OEDEMA [None]
  - OCULAR RETROBULBAR HAEMORRHAGE [None]
